FAERS Safety Report 5004475-9 (Version None)
Quarter: 2006Q2

REPORT INFORMATION
  Report Type: 
  Country: None (occurrence: None)
  Receive Date: 20060516
  Receipt Date: 20060516
  Transmission Date: 20061013
  Serious: Yes (Disabling)
  Sender: FDA-Public Use
  Company Number: None

PATIENT
  Age: 43 Year
  Sex: Female
  Weight: 72.5755 kg

DRUGS (3)
  1. NEURONTIN [Suspect]
     Indication: NEURALGIA
     Dates: start: 20000101, end: 20010101
  2. NEURONTIN [Suspect]
     Indication: NEUROPATHY
     Dates: start: 20000101, end: 20010101
  3. AMITRIPTYLINE HCL [Concomitant]

REACTIONS (7)
  - CONFUSIONAL STATE [None]
  - DIZZINESS [None]
  - FEAR [None]
  - HEPATIC CYST [None]
  - MEMORY IMPAIRMENT [None]
  - MOOD ALTERED [None]
  - TEARFULNESS [None]
